FAERS Safety Report 7287923-3 (Version None)
Quarter: 2011Q1

REPORT INFORMATION
  Report Type: 
  Country: None (occurrence: None)
  Receive Date: 20110211
  Receipt Date: 20110203
  Transmission Date: 20110831
  Serious: No
  Sender: FDA-Public Use
  Company Number: US-PFIZER INC-2011025724

PATIENT

DRUGS (4)
  1. TYLENOL-500 [Suspect]
  2. CELEBREX [Suspect]
     Indication: ARTHRITIS
  3. LYRICA [Suspect]
  4. NEURONTIN [Suspect]

REACTIONS (1)
  - OFF LABEL USE [None]
